FAERS Safety Report 4558039-1 (Version None)
Quarter: 2005Q1

REPORT INFORMATION
  Report Type: 
  Country: None (occurrence: None)
  Receive Date: 20050121
  Receipt Date: 20040629
  Transmission Date: 20050727
  Serious: No
  Sender: FDA-Public Use
  Company Number: US-BRISTOL-MYERS SQUIBB COMPANY-12628178

PATIENT
  Age: 34 Year
  Sex: Female
  Weight: 45 kg

DRUGS (2)
  1. SERZONE [Suspect]
     Indication: GENERALISED ANXIETY DISORDER
     Route: 048
     Dates: end: 20040622
  2. NEURONTIN [Concomitant]

REACTIONS (5)
  - FEELING ABNORMAL [None]
  - FORMICATION [None]
  - HYPERHIDROSIS [None]
  - NAUSEA [None]
  - PALPITATIONS [None]
